FAERS Safety Report 18232562 (Version 5)
Quarter: 2021Q2

REPORT INFORMATION
  Report Type: Spontaneous
  Country: US (occurrence: US)
  Receive Date: 20200904
  Receipt Date: 20210624
  Transmission Date: 20210717
  Serious: Yes (Hospitalization)
  Sender: FDA-Public Use
  Company Number: US-PFIZER INC-2020343018

PATIENT
  Age: 56 Year
  Sex: Female

DRUGS (3)
  1. IBRANCE [Suspect]
     Active Substance: PALBOCICLIB
     Dosage: 100 MG, CYCLIC (DAILY ON DAYS 1?21)
  2. IBRANCE [Suspect]
     Active Substance: PALBOCICLIB
     Indication: BREAST CANCER FEMALE
     Dosage: 125 MG, CYCLIC (DAILY FOR 21 DAYS THEN 7 DAYS OFF)
     Dates: start: 20200714, end: 202007
  3. IBRANCE [Suspect]
     Active Substance: PALBOCICLIB
     Dosage: 125 MG, CYCLIC (DAILY FOR 21 DAYS Q 28 DAYS)
     Dates: start: 20200715

REACTIONS (9)
  - Abdominal discomfort [Recovering/Resolving]
  - Emotional disorder [Unknown]
  - Vomiting [Unknown]
  - Fatigue [Not Recovered/Not Resolved]
  - Stomatitis [Recovering/Resolving]
  - Alopecia [Unknown]
  - Rash [Unknown]
  - Seizure [Unknown]
  - Depressed mood [Unknown]

NARRATIVE: CASE EVENT DATE: 202009
